FAERS Safety Report 6736595-2 (Version None)
Quarter: 2010Q2

REPORT INFORMATION
  Report Type: 
  Country: None (occurrence: None)
  Receive Date: 20100521
  Receipt Date: 20100510
  Transmission Date: 20101027
  Serious: Yes (Death, Other)
  Sender: FDA-Public Use
  Company Number: US-ELI_LILLY_AND_COMPANY-US201003006364

PATIENT
  Sex: Female

DRUGS (13)
  1. FORTEO [Suspect]
     Indication: OSTEOPOROSIS
     Dosage: 20 UG, DAILY (1/D)
  2. ALPRAZOLAM [Concomitant]
     Dosage: 0.5 MG, UNK
  3. FUROSEMIDE [Concomitant]
     Dosage: 80 MG, UNK
  4. SINGULAIR [Concomitant]
     Dosage: 10 MG, UNK
  5. THEOPHYLLINE [Concomitant]
     Dosage: 200 MG, UNK
  6. POTASSIUM CHLORIDE [Concomitant]
     Dosage: 10 MEQ, UNK
  7. GABAPENTIN [Concomitant]
     Dosage: 100 D/F, UNK
  8. MUCINEX [Concomitant]
     Dosage: 600 MG, UNK
  9. RAMIPRIL [Concomitant]
     Dosage: 5 MG, UNK
  10. PREDNISONE [Concomitant]
     Dosage: 20 MG, UNK
  11. MORPHINE SULFATE [Concomitant]
     Dosage: 20 MG, UNK
  12. NYSTATIN [Concomitant]
     Route: 048
  13. KETOCONAZOLE [Concomitant]
     Dosage: 200 MG, UNK

REACTIONS (2)
  - CARDIAC FAILURE CONGESTIVE [None]
  - CHRONIC OBSTRUCTIVE PULMONARY DISEASE [None]
